FAERS Safety Report 8261639-9 (Version None)
Quarter: 2012Q2

REPORT INFORMATION
  Report Type: 
  Country: None (occurrence: None)
  Receive Date: 20120405
  Receipt Date: 20120403
  Transmission Date: 20120825
  Serious: Yes (Hospitalization)
  Sender: FDA-Public Use
  Company Number: US-BAYER-2012-032569

PATIENT
  Age: 58 Year
  Sex: Male

DRUGS (3)
  1. BETASERON [Suspect]
     Indication: RELAPSING-REMITTING MULTIPLE SCLEROSIS
     Dosage: UNK
     Dates: start: 20030227, end: 20080715
  2. BETASERON [Suspect]
     Dosage: UNK
     Dates: start: 20080717, end: 20110201
  3. BETASERON [Suspect]
     Dosage: 4 MIU, QOD
     Route: 058
     Dates: start: 20120316

REACTIONS (2)
  - PAIN [None]
  - EYE PAIN [None]
